FAERS Safety Report 13331085 (Version 1)
Quarter: 2017Q1

REPORT INFORMATION
  Report Type: Spontaneous
  Country: US (occurrence: US)
  Receive Date: 20170313
  Receipt Date: 20170313
  Transmission Date: 20170428
  Serious: Yes (Disabling)
  Sender: FDA-Public Use
  Company Number: None

PATIENT
  Age: 37 Year
  Sex: Male
  Weight: 72 kg

DRUGS (1)
  1. AVO-CEPHAXELIN [Suspect]
     Active Substance: CEPHALEXIN
     Indication: INFECTION
     Dosage: ?          QUANTITY:28 TABLET(S);?
     Route: 048
     Dates: start: 20170303, end: 20170307

REACTIONS (7)
  - Asthenia [None]
  - Abdominal pain upper [None]
  - Muscle spasms [None]
  - Diarrhoea [None]
  - Myalgia [None]
  - Product quality issue [None]
  - Bedridden [None]

NARRATIVE: CASE EVENT DATE: 20170307
